FAERS Safety Report 4848798-2 (Version None)
Quarter: 2005Q4

REPORT INFORMATION
  Report Type: 
  Country: None (occurrence: None)
  Receive Date: 20051208
  Receipt Date: 20051201
  Transmission Date: 20060501
  Serious: Yes (Death)
  Sender: FDA-Public Use
  Company Number: DK-ABBOTT-05P-044-0318461-00

PATIENT
  Sex: Female

DRUGS (3)
  1. HUMIRA [Suspect]
     Indication: RHEUMATOID ARTHRITIS
     Route: 058
     Dates: end: 20040101
  2. METHOTREXATE [Concomitant]
     Indication: RHEUMATOID ARTHRITIS
     Dates: end: 20040302
  3. ETHANOL [Concomitant]
     Indication: DRUG USE FOR UNKNOWN INDICATION
     Dates: start: 20040303

REACTIONS (7)
  - ADJUSTMENT DISORDER [None]
  - ANGER [None]
  - BALANCE DISORDER [None]
  - COMPLETED SUICIDE [None]
  - FEELING ABNORMAL [None]
  - OVERDOSE [None]
  - UNEVALUABLE EVENT [None]
